FAERS Safety Report 7875048-5 (Version None)
Quarter: 2011Q4

REPORT INFORMATION
  Report Type: 
  Country: None (occurrence: None)
  Receive Date: 20111031
  Receipt Date: 20111019
  Transmission Date: 20120403
  Serious: Yes (Hospitalization)
  Sender: FDA-Public Use
  Company Number: DE-BRISTOL-MYERS SQUIBB COMPANY-16201931

PATIENT
  Age: 70 Year
  Sex: Male
  Weight: 60 kg

DRUGS (2)
  1. IRINOTECAN HCL [Suspect]
     Indication: COLORECTAL CANCER METASTATIC
     Dosage: 1 DF = 310 UNITS NOS. RECENT DOSE 15SEP11 - DRUG INTERR
     Route: 042
     Dates: start: 20110818
  2. CETUXIMAB [Suspect]
     Indication: COLORECTAL CANCER METASTATIC
     Dosage: RECENT DOSE 15SEP11 - DRUG INTERR. RESTARTED 28SEP11 - 1 DF = 430 UNITS NOS
     Route: 042
     Dates: start: 20110418

REACTIONS (1)
  - HAEMOGLOBIN DECREASED [None]
